FAERS Safety Report 8461814-4 (Version None)
Quarter: 2012Q2

REPORT INFORMATION
  Report Type: 
  Country: None (occurrence: None)
  Receive Date: 20120625
  Receipt Date: 20120613
  Transmission Date: 20120825
  Serious: Yes (Hospitalization)
  Sender: FDA-Public Use
  Company Number: US-BRISTOL-MYERS SQUIBB COMPANY-16687295

PATIENT
  Age: 69 Year
  Sex: Female

DRUGS (24)
  1. MILK OF MAGNESIA TAB [Concomitant]
     Indication: CONSTIPATION
     Route: 048
  2. ONDANSETRON [Concomitant]
     Indication: NAUSEA
     Dosage: PRN
     Route: 048
  3. MORPHINE SULFATE [Concomitant]
     Indication: PAIN
     Route: 042
  4. MAGNESIUM SULFATE [Concomitant]
     Dosage: INJ. 6 G, 4 G EVERY 4 HR
     Route: 042
  5. OXYCODONE HCL [Concomitant]
     Indication: PAIN
     Dosage: LIQUID. 5ML EVERY 4 HOURS, 10 ML AT BEDTIME
  6. IPRATROPIUM BROMIDE [Concomitant]
     Dosage: NEB PRN
     Route: 055
  7. ALBUTEROL [Concomitant]
     Dosage: 2.5 NED INHALATION, PRN
     Route: 055
  8. SALMETEROL + FLUTICASONE [Concomitant]
     Dosage: 1 DF: 1 PUFF. 500 MCG+50MCG/PUFF
     Route: 055
  9. DOCUSATE [Concomitant]
     Dosage: SOLUTION 100 MG/25 ML
     Route: 048
  10. ROBINUL [Concomitant]
     Dosage: 1 DF: 1 TAB, 1 MG
  11. SPIRIVA [Concomitant]
  12. POTASSIUM CHLORIDE [Concomitant]
     Dosage: 40MEQ, 80MEQ, 100 MEQ EVERY 4 HR
     Route: 042
  13. DASATINIB [Suspect]
     Indication: SQUAMOUS CELL CARCINOMA
     Dosage: STRENGTH: 50 MGS. 1D6043C-EXP DATE: APR14, 1K69449-EXP DATE:30JUN16;EVERY MORNING; HELD 13-18JUN12
     Route: 048
     Dates: start: 20120507
  14. MINOCYCLINE HCL [Concomitant]
     Dosage: 100 MG
     Route: 048
  15. COLACE LIQUID [Concomitant]
     Dosage: 100 MG
  16. AZITHROMYCIN [Concomitant]
     Dosage: ENTERAL
     Route: 048
  17. PREDNISONE TAB [Concomitant]
     Dosage: ENTERAL
     Route: 048
  18. TIOTROPIUM BROMIDE [Concomitant]
     Dosage: INHALATION, 1 DF: 1 PUFF
     Route: 055
  19. HEPARIN SODIUM [Concomitant]
     Dosage: 5000 UNITS NOS
     Route: 058
  20. CETUXIMAB [Suspect]
     Indication: SQUAMOUS CELL CARCINOMA
  21. GABAPENTIN [Concomitant]
     Dosage: 18 ML, 50MG/ML
  22. PANTOPRAZOLE [Concomitant]
     Dosage: ENTERAL
     Route: 048
  23. ZOFRAN [Concomitant]
     Indication: NAUSEA
     Dosage: AS NEEDED
  24. ADVAIR DISKUS 100/50 [Concomitant]

REACTIONS (2)
  - HYPOXIA [None]
  - FLUID OVERLOAD [None]
